FAERS Safety Report 4449744-6 (Version None)
Quarter: 2004Q3

REPORT INFORMATION
  Report Type: 
  Country: None (occurrence: None)
  Receive Date: 20040913
  Receipt Date: 20040913
  Transmission Date: 20050211
  Serious: Yes (Hospitalization)
  Sender: FDA-Public Use
  Company Number: None

PATIENT
  Sex: Female
  Weight: 82.5547 kg

DRUGS (3)
  1. CELECOXIB [Suspect]
     Indication: BILE DUCT CANCER
     Dosage: 400 MG PO BID
     Route: 048
     Dates: start: 20040412, end: 20040824
  2. GEMZAR [Suspect]
     Indication: BILE DUCT CANCER
     Dosage: 500 MG/M2
     Dates: start: 20040412, end: 20040824
  3. IRINOTECAN - PFIZER [Suspect]
     Indication: BILE DUCT CANCER
     Dosage: 50MG/M2
     Dates: start: 20040412, end: 20040824

REACTIONS (3)
  - HAEMOGLOBIN DECREASED [None]
  - PLATELET COUNT DECREASED [None]
  - WHITE BLOOD CELL COUNT DECREASED [None]
